FAERS Safety Report 11795193 (Version 5)
Quarter: 2016Q1

REPORT INFORMATION
  Report Type: Report from Study
  Country: US (occurrence: None)
  Receive Date: 20151202
  Receipt Date: 20160219
  Transmission Date: 20160525
  Serious: Yes (Other)
  Sender: FDA-Public Use
  Company Number: US-MDT-ADR-2015-02271

PATIENT
  Age: 68 Year
  Sex: Male

DRUGS (2)
  1. DILAUDID [Suspect]
     Active Substance: HYDROMORPHONE HYDROCHLORIDE
     Indication: PAIN
     Dosage: 1.6505 MG/DAY
  2. COMPOUNDED BACLOFEN INTRATHECAL 400 MCG/ML [Suspect]
     Active Substance: BACLOFEN
     Indication: PAIN
     Dosage: 165.05 MCG/DAY

REACTIONS (5)
  - Hypoaesthesia [None]
  - Therapeutic response decreased [None]
  - Pain [None]
  - Medical device site fibrosis [None]
  - Infusion site mass [None]
